FAERS Safety Report 5399867-2 (Version None)
Quarter: 2007Q3

REPORT INFORMATION
  Report Type: 
  Country: None (occurrence: None)
  Receive Date: 20070730
  Receipt Date: 20070724
  Transmission Date: 20080115
  Serious: Yes (Other)
  Sender: FDA-Public Use
  Company Number: PHNU2007DE02640

PATIENT
  Sex: Female

DRUGS (3)
  1. LEPONEX [Suspect]
     Dosage: 150 MG/DAY
     Route: 048
  2. LEPONEX [Suspect]
     Dosage: 300 MG/DAY
     Route: 048
  3. VALIUM [Concomitant]

REACTIONS (2)
  - BLOOD CREATINE PHOSPHOKINASE INCREASED [None]
  - CARDIAC DISCOMFORT [None]
